FAERS Safety Report 5012746-5 (Version None)
Quarter: 2006Q2

REPORT INFORMATION
  Report Type: 
  Country: None (occurrence: None)
  Receive Date: 20060530
  Receipt Date: 20060110
  Transmission Date: 20061013
  Serious: Yes (Hospitalization)
  Sender: FDA-Public Use
  Company Number: US-BRISTOL-MYERS SQUIBB COMPANY-13243910

PATIENT
  Age: 58 Year
  Sex: Female
  Weight: 83 kg

DRUGS (12)
  1. ERBITUX [Suspect]
     Indication: COLORECTAL CANCER METASTATIC
     Route: 042
     Dates: start: 20051230, end: 20051230
  2. DECADRON SRC [Concomitant]
     Indication: PREMEDICATION
     Route: 042
     Dates: start: 20051230, end: 20051230
  3. BENADRYL [Concomitant]
     Indication: PREMEDICATION
     Route: 042
     Dates: start: 20051230, end: 20051230
  4. ALOXI [Concomitant]
     Indication: PREMEDICATION
     Route: 042
     Dates: start: 20051230, end: 20051230
  5. TYLENOL (GELTAB) [Concomitant]
     Indication: PREMEDICATION
     Route: 048
     Dates: start: 20051230, end: 20051230
  6. CRESTOR [Concomitant]
     Dates: start: 20041001, end: 20041001
  7. FOSAMAX [Concomitant]
     Dates: start: 20041001, end: 20041001
  8. OS-CAL [Concomitant]
     Dates: start: 20041001, end: 20041001
  9. ASPIRIN [Concomitant]
     Dates: start: 20041001, end: 20041001
  10. AVASTIN [Concomitant]
  11. OXALIPLATIN [Concomitant]
  12. XELODA [Concomitant]

REACTIONS (1)
  - INFUSION RELATED REACTION [None]
